FAERS Safety Report 11424305 (Version 1)
Quarter: 2015Q3

REPORT INFORMATION
  Report Type: Spontaneous
  Country: IT (occurrence: IT)
  Receive Date: 20150827
  Receipt Date: 20150827
  Transmission Date: 20151125
  Serious: Yes (Other)
  Sender: FDA-Public Use
  Company Number: PHHY2015IT100768

PATIENT
  Age: 61 Year
  Sex: Female

DRUGS (1)
  1. METOCLOPRAMIDE. [Suspect]
     Active Substance: METOCLOPRAMIDE
     Indication: NAUSEA
     Dosage: 10 MG, UNK
     Route: 065

REACTIONS (5)
  - Myoclonus [Recovered/Resolved]
  - Dysphagia [Unknown]
  - Dyslalia [Recovered/Resolved]
  - Dysphonia [Recovered/Resolved]
  - Eyelid myoclonus [Unknown]
